FAERS Safety Report 7438222-8 (Version None)
Quarter: 2011Q2

REPORT INFORMATION
  Report Type: 
  Country: None (occurrence: None)
  Receive Date: 20110421
  Receipt Date: 20110421
  Transmission Date: 20111010
  Serious: No
  Sender: FDA-Public Use
  Company Number: None

PATIENT
  Sex: Male

DRUGS (2)
  1. RIBAVIRIN [Suspect]
     Indication: HEPATITIS C
     Dosage: 600 MG BID PO FILLED ONCE
     Route: 048
     Dates: start: 20110129
  2. PEGASYS PFS MONTHLY KIT 180MCG/.5ML ROCHE [Suspect]
     Indication: HEPATITIS C
     Dosage: 180 MCG WEEKLY SUBQ FILLED ONCE
     Route: 058
     Dates: end: 20110129

REACTIONS (5)
  - ANXIETY [None]
  - DEPRESSION [None]
  - NAUSEA [None]
  - VOMITING [None]
  - WEIGHT DECREASED [None]
